FAERS Safety Report 25660861 (Version 1)
Quarter: 2025Q3

REPORT INFORMATION
  Report Type: Spontaneous
  Country: AU (occurrence: AU)
  Receive Date: 20250808
  Receipt Date: 20250808
  Transmission Date: 20251020
  Serious: Yes (Hospitalization, Other)
  Sender: ABBVIE
  Company Number: AU-LUNDBECK-DKLU4017683

PATIENT
  Age: 25 Year
  Sex: Male

DRUGS (1)
  1. CELEXA [Suspect]
     Active Substance: CITALOPRAM HYDROBROMIDE
     Indication: Product used for unknown indication
     Route: 065

REACTIONS (2)
  - Small fibre neuropathy [Not Recovered/Not Resolved]
  - Sexual dysfunction [Not Recovered/Not Resolved]
